FAERS Safety Report 9544019 (Version 2)
Quarter: 2013Q3

REPORT INFORMATION
  Report Type: Spontaneous
  Country: IT (occurrence: IT)
  Receive Date: 20130923
  Receipt Date: 20130923
  Transmission Date: 20140515
  Serious: Yes (Other)
  Sender: FDA-Public Use
  Company Number: IT-009507513-1212ITA003226

PATIENT
  Age: 40 Year
  Sex: Female

DRUGS (2)
  1. TRIMETON [Suspect]
     Indication: PROPHYLAXIS
     Dosage: 10 MG/ML, QD
     Route: 042
     Dates: start: 20121112, end: 20121112
  2. DELTACORTENE [Concomitant]
     Dosage: UNK
     Route: 048
     Dates: start: 20121111, end: 20121111

REACTIONS (1)
  - Urticaria [Recovered/Resolved]
